FAERS Safety Report 9459972 (Version 1)
Quarter: 2013Q3

REPORT INFORMATION
  Report Type: Report from Study
  Country: AR (occurrence: AR)
  Receive Date: 20130815
  Receipt Date: 20130815
  Transmission Date: 20140515
  Serious: Yes (Hospitalization, Other)
  Sender: FDA-Public Use
  Company Number: PHHY2013AR088004

PATIENT
  Sex: Female

DRUGS (1)
  1. DIOVAN D [Suspect]
     Dosage: 1 DF (80/12.5MG) DAILY
     Route: 048
     Dates: start: 201301, end: 201303

REACTIONS (2)
  - Renal cancer [Recovering/Resolving]
  - Blood pressure increased [Recovering/Resolving]
